FAERS Safety Report 19243761 (Version 1)
Quarter: 2021Q2

REPORT INFORMATION
  Report Type: Spontaneous
  Country: FR (occurrence: FR)
  Receive Date: 20210511
  Receipt Date: 20210511
  Transmission Date: 20210717
  Serious: Yes (Other)
  Sender: FDA-Public Use
  Company Number: FR-AUROBINDO-AUR-APL-2021-018836

PATIENT
  Age: 34 Year
  Sex: Female
  Weight: 90 kg

DRUGS (3)
  1. FUROSEMIDE. [Suspect]
     Active Substance: FUROSEMIDE
     Indication: CONGENITAL CYSTIC KIDNEY DISEASE
     Dosage: UNK
     Route: 048
  2. IMUREL [Suspect]
     Active Substance: AZATHIOPRINE SODIUM
     Indication: SARCOIDOSIS
     Dosage: 1 CP LES JOURS DE DIALYSE
     Route: 048
     Dates: start: 20210222
  3. ATENOLOL BIOGARAN [Suspect]
     Active Substance: ATENOLOL
     Indication: PRODUCT USED FOR UNKNOWN INDICATION
     Dosage: UNK
     Route: 048

REACTIONS (1)
  - Hypotension [Not Recovered/Not Resolved]

NARRATIVE: CASE EVENT DATE: 20210319
